FAERS Safety Report 6557672-5 (Version None)
Quarter: 2010Q1

REPORT INFORMATION
  Report Type: 
  Country: None (occurrence: None)
  Receive Date: 20100129
  Receipt Date: 20091123
  Transmission Date: 20100710
  Serious: Yes (Life-Threatening, Hospitalization, Other)
  Sender: FDA-Public Use
  Company Number: A0809955A

PATIENT
  Age: 43 Year
  Sex: Male

DRUGS (4)
  1. COMBIVIR [Suspect]
     Indication: HIV INFECTION
     Dosage: 1TAB PER DAY
     Route: 048
     Dates: start: 20080101, end: 20080401
  2. KALETRA [Concomitant]
  3. SULFADIAZINE [Concomitant]
  4. DARAPRIM [Concomitant]

REACTIONS (1)
  - ANAEMIA [None]
